FAERS Safety Report 9857053 (Version 2)
Quarter: 2014Q1

REPORT INFORMATION
  Report Type: Spontaneous
  Country: US (occurrence: US)
  Receive Date: 20140130
  Receipt Date: 20140130
  Transmission Date: 20141002
  Serious: Yes (Disabling)
  Sender: FDA-Public Use
  Company Number: US-GE HEALTHCARE MEDICAL DIAGNOSTICS-OSCN-PR-0911S-0492

PATIENT
  Age: 66 Year
  Sex: Male

DRUGS (4)
  1. OMNISCAN [Suspect]
     Indication: BACK PAIN
     Route: 042
     Dates: start: 20060608, end: 20060608
  2. OMNISCAN [Suspect]
     Indication: PRODUCT USED FOR UNKNOWN INDICATION
     Route: 042
     Dates: start: 20060610, end: 20060610
  3. OMNISCAN [Suspect]
     Route: 042
     Dates: start: 20060614, end: 20060614
  4. OMNISCAN [Suspect]
     Route: 042
     Dates: start: 20060627, end: 20060627

REACTIONS (1)
  - Nephrogenic systemic fibrosis [Not Recovered/Not Resolved]
